FAERS Safety Report 7514873-7 (Version None)
Quarter: 2011Q2

REPORT INFORMATION
  Report Type: 
  Country: None (occurrence: None)
  Receive Date: 20110601
  Receipt Date: 20110518
  Transmission Date: 20111010
  Serious: Yes (Other)
  Sender: FDA-Public Use
  Company Number: DK-JNJFOC-20110500771

PATIENT
  Sex: Female
  Weight: 58 kg

DRUGS (3)
  1. REMICADE [Suspect]
     Indication: CROHN'S DISEASE
     Route: 042
     Dates: start: 20100805, end: 20110428
  2. FERINJECT [Concomitant]
     Indication: PREMEDICATION
  3. STEROIDS NOS [Concomitant]
     Indication: PREMEDICATION

REACTIONS (7)
  - DYSPNOEA [None]
  - INFUSION RELATED REACTION [None]
  - TACHYCARDIA [None]
  - BRONCHOSPASM [None]
  - RASH [None]
  - CHEST DISCOMFORT [None]
  - HYPOTENSION [None]
